FAERS Safety Report 7530561-5 (Version None)
Quarter: 2011Q2

REPORT INFORMATION
  Report Type: 
  Country: None (occurrence: None)
  Receive Date: 20110607
  Receipt Date: 20090306
  Transmission Date: 20111010
  Serious: Yes (Other)
  Sender: FDA-Public Use
  Company Number: US-BAYER-2011-009844

PATIENT
  Age: 38 Year
  Sex: Male
  Weight: 81 kg

DRUGS (23)
  1. TRASYLOL [Suspect]
     Indication: MITRAL VALVE REPLACEMENT
     Dosage: 100 ML BOLUS
     Route: 042
     Dates: start: 20011214, end: 20011214
  2. LASIX [Concomitant]
     Dosage: 40 MG, UNK
     Route: 048
  3. PROTAMINE SULFATE [Concomitant]
     Dosage: 200 MG, UNK
     Route: 042
     Dates: start: 20011214, end: 20011214
  4. TRASYLOL [Suspect]
     Dosage: 25ML/HOUR
     Route: 042
     Dates: start: 20011214, end: 20011214
  5. LISINOPRIL [Concomitant]
     Dosage: 5 MG, QD
     Route: 048
  6. MIDAZOLAM [Concomitant]
     Dosage: 2 MG, UNK
     Route: 042
     Dates: start: 20011214, end: 20011214
  7. MORPHINE [Concomitant]
     Dosage: 10 MG, UNK
     Route: 042
     Dates: start: 20011214, end: 20011214
  8. DIGOXIN [Concomitant]
     Dosage: 0.25 MG, QD
     Route: 048
  9. HEPARIN [Concomitant]
     Dosage: 35000 UNITS
     Route: 042
     Dates: start: 20011214, end: 20011214
  10. LIDOCAINE [Concomitant]
     Dosage: 200 MG, UNK
     Dates: start: 20011214, end: 20011214
  11. ROCEPHIN [Concomitant]
     Dosage: 1 G, QD
     Route: 042
  12. GENTAMYCIN SULFATE [Concomitant]
     Dosage: 80 MG, UNK
     Route: 042
  13. COUMADIN [Concomitant]
     Route: 048
  14. ANCEF [Concomitant]
     Dosage: 1 G, UNK
     Route: 042
     Dates: start: 20011214
  15. SUFENTANIL CITRATE [Concomitant]
     Dosage: 750 MG, UNK
     Route: 042
     Dates: start: 20011214, end: 20011214
  16. NOREPINEPHRINE BITARTRATE [Concomitant]
     Dosage: 2 MG/H
     Route: 042
     Dates: start: 20011214
  17. VANCOMYCIN [Concomitant]
     Dosage: 1 G, QD
     Route: 042
  18. PANCURONIUM [Concomitant]
     Dosage: 20 MG, UNK
     Route: 042
     Dates: start: 20011214, end: 20011214
  19. DOBUTAMINE HYDROCHLORIDE [Concomitant]
     Dosage: 3 TO 5 MCG/KG/HOUR
     Route: 042
     Dates: start: 20011214
  20. TRASYLOL [Suspect]
     Indication: AORTIC VALVE REPLACEMENT
     Dosage: 1 ML
     Route: 042
     Dates: start: 20011214, end: 20011214
  21. HEPARIN [Concomitant]
     Dosage: UNK
     Route: 042
     Dates: start: 20011214, end: 20011214
  22. PENICILLIN G [Concomitant]
     Dosage: 20 MILLION UNITS IN 24 HOURS
     Route: 042
  23. FRESH FROZEN PLASMA [Concomitant]
     Dosage: 2 U
     Route: 042

REACTIONS (11)
  - FEAR [None]
  - ANXIETY [None]
  - STRESS [None]
  - RENAL IMPAIRMENT [None]
  - EMOTIONAL DISTRESS [None]
  - CEREBROVASCULAR ACCIDENT [None]
  - RENAL INJURY [None]
  - RENAL FAILURE [None]
  - MULTI-ORGAN FAILURE [None]
  - UNEVALUABLE EVENT [None]
  - PAIN [None]
